FAERS Safety Report 8525693-9 (Version None)
Quarter: 2012Q3

REPORT INFORMATION
  Report Type: 
  Country: None (occurrence: None)
  Receive Date: 20120720
  Receipt Date: 20120712
  Transmission Date: 20120928
  Serious: Yes (Death, Life-Threatening, Other)
  Sender: FDA-Public Use
  Company Number: JP-CELGENEUS-087-50794-12072025

PATIENT
  Sex: Female
  Weight: 33 kg

DRUGS (25)
  1. SENNOSIDE [Concomitant]
     Route: 065
     Dates: start: 20120101
  2. LANTUS [Concomitant]
     Route: 065
     Dates: start: 20120322, end: 20120327
  3. VIDAZA [Suspect]
     Dosage: 75 MILLIGRAM/SQ. METER
     Route: 058
     Dates: start: 20120223, end: 20120227
  4. PREDNISOLONE [Concomitant]
     Route: 065
     Dates: start: 20120227, end: 20120227
  5. WHOLE BLOOD [Concomitant]
     Route: 041
  6. WARKMIN [Concomitant]
     Route: 065
  7. WARKMIN [Concomitant]
     Route: 065
     Dates: end: 20120321
  8. DOPAMINE HYCROCHLORIDE [Concomitant]
     Route: 065
     Dates: start: 20120327, end: 20120327
  9. VIDAZA [Suspect]
     Indication: MYELODYSPLASTIC SYNDROME
     Dosage: 75 MILLIGRAM/SQ. METER
     Route: 058
     Dates: start: 20111227, end: 20111231
  10. FRANDOL S [Concomitant]
     Route: 065
     Dates: start: 20120301, end: 20120327
  11. OLIVES K [Concomitant]
     Route: 065
     Dates: start: 20120313, end: 20120318
  12. HANP [Concomitant]
     Route: 065
     Dates: start: 20120319, end: 20120323
  13. MAGMITT [Concomitant]
     Route: 065
     Dates: end: 20120327
  14. SINSERON [Concomitant]
     Route: 065
     Dates: start: 20111227, end: 20111231
  15. SINSERON [Concomitant]
     Route: 065
     Dates: start: 20120223, end: 20120227
  16. ZOLPIDEM [Concomitant]
     Route: 065
     Dates: end: 20120321
  17. CANDESARTAN CILEXETIL [Concomitant]
     Route: 065
  18. CANDESARTAN CILEXETIL [Concomitant]
     Route: 065
     Dates: end: 20120327
  19. MUCOSTA [Concomitant]
     Route: 065
     Dates: start: 20111228
  20. LASIX [Concomitant]
     Route: 065
     Dates: start: 20120229, end: 20120321
  21. VIDAZA [Suspect]
     Dosage: 75 MILLIGRAM/SQ. METER
     Route: 058
     Dates: start: 20120123, end: 20120127
  22. MAGMITT [Concomitant]
     Route: 065
     Dates: start: 20111230
  23. LORFENAMIN [Concomitant]
     Route: 065
     Dates: start: 20111228
  24. CEFEPIME DIHYDROCHLORIDE HYDRATE [Concomitant]
     Route: 065
     Dates: start: 20120313, end: 20120322
  25. ZOLPIDEM [Concomitant]
     Route: 065
     Dates: start: 20120107

REACTIONS (2)
  - CARDIAC FAILURE [None]
  - VENTRICULAR ARRHYTHMIA [None]
